FAERS Safety Report 17638130 (Version 4)
Quarter: 2020Q3

REPORT INFORMATION
  Report Type: Spontaneous
  Country: JP (occurrence: JP)
  Receive Date: 20200407
  Receipt Date: 20200901
  Transmission Date: 20201102
  Serious: Yes (Hospitalization)
  Sender: FDA-Public Use
  Company Number: JP-ASTRAZENECA-2020SE47065

PATIENT
  Age: 26865 Day
  Sex: Male
  Weight: 58 kg

DRUGS (1)
  1. IMFINZI [Suspect]
     Active Substance: DURVALUMAB
     Indication: NON-SMALL CELL LUNG CANCER
     Route: 042
     Dates: start: 20191031, end: 20200327

REACTIONS (3)
  - Liver disorder [Recovering/Resolving]
  - Hyperthyroidism [Recovered/Resolved]
  - Basedow^s disease [Recovered/Resolved]

NARRATIVE: CASE EVENT DATE: 20191227
